FAERS Safety Report 9829181 (Version 2)
Quarter: 2014Q3

REPORT INFORMATION
  Report Type: Spontaneous
  Country: US (occurrence: US)
  Receive Date: 20140119
  Receipt Date: 20140824
  Transmission Date: 20150326
  Serious: Yes (Hospitalization)
  Sender: FDA-Public Use
  Company Number: US-009507513-1401USA005557

PATIENT
  Sex: Female

DRUGS (1)
  1. NUVARING [Suspect]
     Active Substance: ETHINYL ESTRADIOL\ETONOGESTREL
     Dosage: UNK
     Route: 067
     Dates: start: 200706, end: 200903

REACTIONS (9)
  - Deep vein thrombosis [Recovering/Resolving]
  - Anaemia [Recovered/Resolved]
  - Transfusion [Recovered/Resolved]
  - Nausea [Recovered/Resolved]
  - Urinary tract infection [Recovering/Resolving]
  - Stent placement [Unknown]
  - Vomiting [Recovered/Resolved]
  - Vena cava filter insertion [Unknown]
  - Haematoma [Recovered/Resolved]

NARRATIVE: CASE EVENT DATE: 200903
